FAERS Safety Report 6840348-4 (Version None)
Quarter: 2010Q3

REPORT INFORMATION
  Report Type: 
  Country: None (occurrence: None)
  Receive Date: 20100714
  Receipt Date: 20100706
  Transmission Date: 20110219
  Serious: Yes (Disabling)
  Sender: FDA-Public Use
  Company Number: FR-PFIZER INC-2010083811

PATIENT
  Age: 64 Year
  Sex: Female

DRUGS (7)
  1. CYTARABINE [Suspect]
     Indication: ACUTE MYELOID LEUKAEMIA
     Dosage: 180 MG PER MONTH (30 MG FIVE TIMES PER MONTH)
     Route: 042
     Dates: start: 20090701, end: 20100201
  2. ZAVEDOS [Suspect]
     Indication: ACUTE MYELOID LEUKAEMIA
     Dosage: UNK
     Route: 042
     Dates: start: 20090701
  3. BELUSTINE [Suspect]
     Indication: ACUTE MYELOID LEUKAEMIA
     Dosage: UNK
     Route: 042
     Dates: start: 20090701
  4. XATRAL - SLOW RELEASE [Concomitant]
  5. IMOVANE [Concomitant]
  6. ZOPHREN [Concomitant]
  7. DEROXAT [Concomitant]

REACTIONS (1)
  - NEUROPATHY PERIPHERAL [None]
